FAERS Safety Report 16949830 (Version 1)
Quarter: 2019Q4

REPORT INFORMATION
  Report Type: Report from Study
  Country: US (occurrence: US)
  Receive Date: 20191023
  Receipt Date: 20191023
  Transmission Date: 20200122
  Serious: Yes (Death, Other)
  Sender: FDA-Public Use
  Company Number: US-GLAXOSMITHKLINE-US2019TSO170302

PATIENT
  Age: 84 Year
  Sex: Male
  Weight: 93.42 kg

DRUGS (2)
  1. NIRAPARIB [Suspect]
     Active Substance: NIRAPARIB
     Dosage: UNK, QD W/O FOOD
     Route: 048
     Dates: start: 20190925
  2. NIRAPARIB [Suspect]
     Active Substance: NIRAPARIB
     Indication: PROSTATE CANCER
     Dosage: 300 MG, PM W/O FOOD
     Route: 048
     Dates: start: 20190903, end: 20190924

REACTIONS (8)
  - Headache [Not Recovered/Not Resolved]
  - Rash [Recovering/Resolving]
  - Diarrhoea [Not Recovered/Not Resolved]
  - Death [Fatal]
  - Stomatitis [Unknown]
  - Asthenia [Unknown]
  - Musculoskeletal pain [Recovered/Resolved]
  - Off label use [Unknown]

NARRATIVE: CASE EVENT DATE: 20190924
